FAERS Safety Report 5354242-1 (Version None)
Quarter: 2007Q2

REPORT INFORMATION
  Report Type: 
  Country: None (occurrence: None)
  Receive Date: 20070521
  Receipt Date: 20070119
  Transmission Date: 20071010
  Serious: No
  Sender: FDA-Public Use
  Company Number: WAES 0701USA03355

PATIENT
  Age: 64 Year
  Sex: Female

DRUGS (4)
  1. JANUVIA [Suspect]
     Indication: DIABETES MELLITUS NON-INSULIN-DEPENDENT
     Dosage: 100 MG/DAILY/PO
     Route: 048
     Dates: start: 20070111, end: 20070112
  2. PRANDIN [Concomitant]
  3. INSULIN [Concomitant]
  4. PREDNISONE [Concomitant]

REACTIONS (1)
  - BLOOD GLUCOSE INCREASED [None]
